FAERS Safety Report 24073683 (Version 2)
Quarter: 2024Q4

REPORT INFORMATION
  Report Type: Spontaneous
  Country: US (occurrence: US)
  Receive Date: 20240710
  Receipt Date: 20241009
  Transmission Date: 20250115
  Serious: No
  Sender: PAREXEL
  Company Number: US-NOVEN PHARMACEUTICALS, INC.-2024-NOV-US000563

PATIENT
  Age: 31 Year
  Sex: Male

DRUGS (2)
  1. XELSTRYM [Suspect]
     Active Substance: DEXTROAMPHETAMINE
     Indication: Attention deficit hyperactivity disorder
     Dosage: 13.5MG/9 HOURS, DAILY
     Route: 062
     Dates: start: 20240501, end: 202405
  2. XELSTRYM [Suspect]
     Active Substance: DEXTROAMPHETAMINE
     Dosage: 9 MG/9 HOURS, DAILY
     Route: 062
     Dates: start: 20240422, end: 20240501

REACTIONS (6)
  - Application site scab [Not Recovered/Not Resolved]
  - Application site rash [Unknown]
  - Application site burn [Unknown]
  - Application site pain [Not Recovered/Not Resolved]
  - Application site erythema [Unknown]
  - Application site irritation [Unknown]
